FAERS Safety Report 7263272-4 (Version None)
Quarter: 2011Q1

REPORT INFORMATION
  Report Type: 
  Country: None (occurrence: None)
  Receive Date: 20110130
  Receipt Date: 20100924
  Transmission Date: 20110831
  Serious: No
  Sender: FDA-Public Use
  Company Number: US-ABBOTT-10P-163-0673301-00

PATIENT
  Age: 62 Year
  Sex: Male

DRUGS (3)
  1. PREVACID [Concomitant]
     Indication: DYSPEPSIA
     Dosage: 30 MG DAILY
  2. HUMIRA [Suspect]
     Indication: CROHN'S DISEASE
     Dates: start: 20100801
  3. TIMETOL [Concomitant]
     Indication: EYE PENETRATION
     Dosage: R EYE 1 DROP/DAY, L EYE 2 DROP/DAY

REACTIONS (1)
  - HEAD INJURY [None]
